FAERS Safety Report 7115252-7 (Version None)
Quarter: 2010Q4

REPORT INFORMATION
  Report Type: 
  Country: None (occurrence: None)
  Receive Date: 20101122
  Receipt Date: 20101110
  Transmission Date: 20110411
  Serious: Yes (Life-Threatening, Hospitalization)
  Sender: FDA-Public Use
  Company Number: GB-JNJFOC-20100600145

PATIENT
  Age: 68 Year
  Sex: Female

DRUGS (28)
  1. INFLIXIMAB [Suspect]
     Indication: PSORIASIS
     Route: 042
  2. INFLIXIMAB [Suspect]
     Route: 042
  3. INFLIXIMAB [Suspect]
     Route: 042
  4. INFLIXIMAB [Suspect]
     Route: 042
  5. INFLIXIMAB [Suspect]
     Indication: CROHN'S DISEASE
     Route: 042
  6. INFLIXIMAB [Suspect]
     Route: 042
  7. INFLIXIMAB [Suspect]
     Route: 042
  8. INFLIXIMAB [Suspect]
     Route: 042
  9. STELARA [Suspect]
     Indication: CROHN'S DISEASE
     Route: 058
  10. STELARA [Suspect]
     Route: 058
  11. STELARA [Suspect]
     Route: 058
  12. STELARA [Suspect]
     Indication: PSORIASIS
     Route: 058
  13. STELARA [Suspect]
     Route: 058
  14. STELARA [Suspect]
     Route: 058
  15. HUMIRA [Suspect]
     Indication: ILL-DEFINED DISORDER
     Route: 050
  16. AZATHIOPRINE [Suspect]
     Indication: PSORIASIS
     Route: 050
  17. AZATHIOPRINE [Suspect]
     Route: 050
  18. AZATHIOPRINE [Suspect]
     Route: 050
  19. AZATHIOPRINE [Suspect]
     Route: 050
  20. AZATHIOPRINE [Suspect]
     Indication: CROHN'S DISEASE
     Route: 050
  21. AZATHIOPRINE [Suspect]
     Route: 050
  22. AZATHIOPRINE [Suspect]
     Route: 050
  23. AZATHIOPRINE [Suspect]
     Route: 050
  24. RABEPRAZOLE SODIUM [Concomitant]
  25. GABAPENTIN [Concomitant]
  26. METOCLOPRAMIDE [Concomitant]
  27. ORAMORPH SR [Concomitant]
  28. PREDNISOLONE [Concomitant]

REACTIONS (5)
  - CROHN'S DISEASE [None]
  - DRUG INEFFECTIVE [None]
  - HOSPITALISATION [None]
  - NECK PAIN [None]
  - PERIPHERAL T-CELL LYMPHOMA UNSPECIFIED [None]
